FAERS Safety Report 12676261 (Version 1)
Quarter: 2016Q3

REPORT INFORMATION
  Report Type: Spontaneous
  Country: US (occurrence: US)
  Receive Date: 20160823
  Receipt Date: 20160823
  Transmission Date: 20161109
  Serious: Yes (Disabling, Other)
  Sender: FDA-Public Use
  Company Number: US-PERRIGO-16US019086

PATIENT
  Age: 7 Year
  Sex: Male
  Weight: 21.32 kg

DRUGS (3)
  1. COMPLETE LICE TREATMENT KIT [Suspect]
     Active Substance: PIPERONYL BUTOXIDE\PYRETHRUM EXTRACT
     Indication: LICE INFESTATION
     Dosage: 1 APPLICATION, SINGLE
     Route: 061
     Dates: start: 20160810, end: 20160810
  2. COMPLETE LICE TREATMENT KIT [Suspect]
     Active Substance: PIPERONYL BUTOXIDE\PYRETHRUM EXTRACT
     Dosage: UNKNOWN, SINGLE
     Route: 047
     Dates: start: 20160810, end: 20160810
  3. RITALIN [Concomitant]
     Active Substance: METHYLPHENIDATE HYDROCHLORIDE
     Indication: ATTENTION DEFICIT/HYPERACTIVITY DISORDER
     Dosage: UNK
     Route: 048
     Dates: start: 2013

REACTIONS (8)
  - Eye disorder [Not Recovered/Not Resolved]
  - Chemical burns of eye [Not Recovered/Not Resolved]
  - Blindness [Not Recovered/Not Resolved]
  - Conjunctivitis [Not Recovered/Not Resolved]
  - Eye pain [Not Recovered/Not Resolved]
  - Eye injury [Not Recovered/Not Resolved]
  - Drug administration error [Recovered/Resolved]
  - Lacrimation decreased [Not Recovered/Not Resolved]

NARRATIVE: CASE EVENT DATE: 20160810
